FAERS Safety Report 4831688-9 (Version None)
Quarter: 2005Q4

REPORT INFORMATION
  Report Type: 
  Country: None (occurrence: None)
  Receive Date: 20051116
  Receipt Date: 20051110
  Transmission Date: 20060501
  Serious: Yes (Hospitalization)
  Sender: FDA-Public Use
  Company Number: THQ2005A00941

PATIENT
  Age: 50 Year
  Sex: Male

DRUGS (8)
  1. LANSOPRAZOLE [Suspect]
  2. HUMIRA [Suspect]
     Indication: RHEUMATOID ARTHRITIS
     Dosage: 40 MG (40 MG, 1 IN 2 WK), SUBCUTANEOUS
     Route: 058
     Dates: start: 20050401
  3. SULFASALAZINE [Suspect]
  4. ATENOLOL [Suspect]
  5. PROCHLORPERAZINE [Suspect]
  6. ROFECOXIB [Suspect]
  7. WARFARIN SODIUM [Suspect]
  8. FERROUS SULPHATE (FERROUS SULFATE) [Suspect]

REACTIONS (2)
  - ARTHRITIS INFECTIVE [None]
  - DRUG INEFFECTIVE [None]
